FAERS Safety Report 21598484 (Version 1)
Quarter: 2022Q4

REPORT INFORMATION
  Report Type: Spontaneous
  Country: US (occurrence: US)
  Receive Date: 20221115
  Receipt Date: 20221115
  Transmission Date: 20230113
  Serious: No
  Sender: FDA-Public Use
  Company Number: US-ALLERGAN-2230626US

PATIENT
  Age: 57 Year
  Sex: Male

DRUGS (1)
  1. VUITY [Suspect]
     Active Substance: PILOCARPINE HYDROCHLORIDE
     Indication: Presbyopia
     Dosage: 2 GTT
     Route: 047
     Dates: start: 20220830, end: 20220901

REACTIONS (1)
  - Vitreous detachment [Recovered/Resolved]

NARRATIVE: CASE EVENT DATE: 20220901
